FAERS Safety Report 12486971 (Version 1)
Quarter: 2016Q2

REPORT INFORMATION
  Report Type: Spontaneous
  Country: US (occurrence: None)
  Receive Date: 20160621
  Receipt Date: 20160621
  Transmission Date: 20160815
  Serious: Yes (Disabling, Congenital Anomaly)
  Sender: FDA-Public Use
  Company Number: None

PATIENT
  Age: 38 Year
  Sex: Female

DRUGS (1)
  1. LOVENOX [Suspect]
     Active Substance: ENOXAPARIN SODIUM
     Indication: PREGNANCY
     Dosage: EVERY 12 HOURS GIVEN INTO/UNDER THE SKIN
     Route: 058

REACTIONS (6)
  - Foetal exposure during pregnancy [None]
  - Tic [None]
  - Depression [None]
  - Social anxiety disorder [None]
  - School refusal [None]
  - Anxiety [None]
